FAERS Safety Report 4972258-1 (Version None)
Quarter: 2006Q1

REPORT INFORMATION
  Report Type: 
  Country: None (occurrence: None)
  Receive Date: 20060210
  Receipt Date: 20050930
  Transmission Date: 20060701
  Serious: Yes (Hospitalization)
  Sender: FDA-Public Use
  Company Number: CAR-2005-017

PATIENT
  Age: 51 Year
  Sex: Female

DRUGS (2)
  1. SUCRALFATE [Suspect]
     Dosage: EVERY 6 HOURS
  2. LEVOFLOXACIN, CALCIUM CARBONATE [Concomitant]

REACTIONS (1)
  - DRUG INEFFECTIVE [None]
